FAERS Safety Report 7564743-3 (Version None)
Quarter: 2011Q2

REPORT INFORMATION
  Report Type: 
  Country: None (occurrence: None)
  Receive Date: 20110622
  Receipt Date: 20110128
  Transmission Date: 20111010
  Serious: Yes (Other)
  Sender: FDA-Public Use
  Company Number: US-MYLANLABS-2010S1019177

PATIENT
  Age: 62 Year
  Sex: Male
  Weight: 93.44 kg

DRUGS (32)
  1. CLOZAPINE [Suspect]
     Route: 048
     Dates: start: 20101115, end: 20101202
  2. DULOXETIME HYDROCHLORIDE [Concomitant]
  3. GEMFIBROZIL [Concomitant]
  4. CLOZAPINE [Suspect]
     Indication: HALLUCINATION
     Route: 048
     Dates: start: 20090313, end: 20101108
  5. CLOZAPINE [Suspect]
     Route: 048
  6. CLOZAPINE [Suspect]
     Route: 048
     Dates: start: 20101115, end: 20101202
  7. COMTAN [Concomitant]
     Dosage: 5 TIMES/DAY
  8. PROSCAR [Concomitant]
  9. GLUCOPHAGE [Concomitant]
  10. METOPROLOL TARTRATE [Concomitant]
  11. CLOZAPINE [Suspect]
     Indication: DELUSION
     Route: 048
     Dates: start: 20090313, end: 20101108
  12. TIGAN [Concomitant]
  13. OMEGA 3 /00931501/ [Concomitant]
  14. CLOZAPINE [Suspect]
     Route: 048
     Dates: start: 20101115, end: 20101202
  15. CLOZAPINE [Suspect]
     Route: 048
     Dates: start: 20101115, end: 20101202
  16. CLOZAPINE [Suspect]
     Route: 048
  17. PROTONIX [Concomitant]
  18. CLONAZEPAM [Concomitant]
  19. CRESTOR [Concomitant]
  20. GLYBURIDE [Concomitant]
     Dosage: 5 MG TABLETS
  21. HUMULIN R [Concomitant]
     Dosage: SLIDING SCALE
  22. CARBIDOPA + LEVODOPA [Concomitant]
     Dosage: 25/100MG - 2 TABLETS FIVE TIMES DAILY
  23. GABAPENIN [Concomitant]
  24. PROVIGIL [Concomitant]
  25. TAMSULOSIN HCL [Concomitant]
  26. CLOZAPINE [Suspect]
     Indication: PARKINSON'S DISEASE
     Route: 048
     Dates: start: 20090313, end: 20101108
  27. CLOZAPINE [Suspect]
     Indication: PARANOIA
     Route: 048
     Dates: start: 20090313, end: 20101108
  28. CLOZAPINE [Suspect]
     Route: 048
  29. CLOZAPINE [Suspect]
     Route: 048
  30. CARBIDOPA + LEVODOPA [Concomitant]
     Dosage: 50/200
  31. CITALOPRAM HYDROBROMIDE [Concomitant]
  32. ACTOS [Concomitant]

REACTIONS (2)
  - GRANULOCYTOPENIA [None]
  - LEUKOPENIA [None]
